FAERS Safety Report 8471202-2 (Version None)
Quarter: 2012Q2

REPORT INFORMATION
  Report Type: 
  Country: None (occurrence: None)
  Receive Date: 20120627
  Receipt Date: 20120622
  Transmission Date: 20120825
  Serious: Yes (Other)
  Sender: FDA-Public Use
  Company Number: US-PFIZER INC-2012151056

PATIENT
  Sex: Female
  Weight: 89.796 kg

DRUGS (2)
  1. FLAGYL [Suspect]
     Indication: GASTROINTESTINAL BACTERIAL INFECTION
     Dosage: 750 MG, 3X/DAY
     Route: 048
  2. METRONIDAZOLE [Suspect]
     Indication: GASTROINTESTINAL BACTERIAL INFECTION
     Dosage: UNK

REACTIONS (6)
  - VITAMIN D DECREASED [None]
  - GASTROINTESTINAL BACTERIAL INFECTION [None]
  - DIARRHOEA [None]
  - DEPRESSION [None]
  - DIZZINESS [None]
  - ABDOMINAL DISCOMFORT [None]
